FAERS Safety Report 15017347 (Version 5)
Quarter: 2018Q3

REPORT INFORMATION
  Report Type: Report from Study
  Country: CH (occurrence: CH)
  Receive Date: 20180615
  Receipt Date: 20180914
  Transmission Date: 20181010
  Serious: Yes (Other)
  Sender: FDA-Public Use
  Company Number: CH-B.I. PHARMACEUTICALS,INC./RIDGEFIELD-2017-BI-065955

PATIENT
  Age: 51 Year
  Sex: Male

DRUGS (7)
  1. VITAMIN B12 [Suspect]
     Active Substance: CYANOCOBALAMIN
     Indication: PRODUCT USED FOR UNKNOWN INDICATION
     Route: 065
  2. OFEV [Suspect]
     Active Substance: NINTEDANIB
     Route: 048
     Dates: start: 20171015, end: 201804
  3. OFEV [Suspect]
     Active Substance: NINTEDANIB
     Dosage: NORMAL DOSE
     Route: 048
     Dates: start: 20180422
  4. PANTOPRAZOL [Concomitant]
     Active Substance: PANTOPRAZOLE SODIUM
     Indication: PRODUCT USED FOR UNKNOWN INDICATION
     Route: 065
  5. OFEV [Suspect]
     Active Substance: NINTEDANIB
     Route: 048
  6. OFEV [Suspect]
     Active Substance: NINTEDANIB
     Dosage: LOWER DOSE
     Route: 048
     Dates: start: 20180415, end: 20180421
  7. OFEV [Suspect]
     Active Substance: NINTEDANIB
     Indication: IDIOPATHIC PULMONARY FIBROSIS
     Route: 048
     Dates: start: 20170815

REACTIONS (5)
  - Faecal calprotectin increased [Not Recovered/Not Resolved]
  - Cough [Recovered/Resolved]
  - Abdominal pain [Not Recovered/Not Resolved]
  - Dyspepsia [Not Recovered/Not Resolved]
  - Diarrhoea [Not Recovered/Not Resolved]

NARRATIVE: CASE EVENT DATE: 20171015
